FAERS Safety Report 6685110-0 (Version None)
Quarter: 2010Q2

REPORT INFORMATION
  Report Type: 
  Country: None (occurrence: None)
  Receive Date: 20100416
  Receipt Date: 20090528
  Transmission Date: 20101027
  Serious: No
  Sender: FDA-Public Use
  Company Number: US-BRISTOL-MYERS SQUIBB COMPANY-14643951

PATIENT
  Sex: Female

DRUGS (4)
  1. CARBOPLATIN [Suspect]
     Indication: BREAST CANCER
  2. TAXOTERE [Suspect]
     Indication: BREAST CANCER
     Dosage: SOLUTION FOR INJECTION
     Route: 042
  3. HERCEPTIN [Suspect]
     Indication: BREAST CANCER
  4. NEULASTA [Concomitant]

REACTIONS (2)
  - BONE PAIN [None]
  - FATIGUE [None]
